FAERS Safety Report 8019941-1 (Version None)
Quarter: 2012Q1

REPORT INFORMATION
  Report Type: 
  Country: None (occurrence: None)
  Receive Date: 20120103
  Receipt Date: 20111226
  Transmission Date: 20120608
  Serious: Yes (Hospitalization)
  Sender: FDA-Public Use
  Company Number: US-TEVA-315347USA

PATIENT
  Age: 59 Year
  Sex: Female

DRUGS (2)
  1. LETROZOLE [Suspect]
     Dosage: 2.5 MILLIGRAM;
  2. METHADONE HCL [Interacting]

REACTIONS (6)
  - RESPIRATORY DEPRESSION [None]
  - NAUSEA [None]
  - HEADACHE [None]
  - DRUG INTERACTION [None]
  - SOMNOLENCE [None]
  - HYPOTENSION [None]
